FAERS Safety Report 15215454 (Version 1)
Quarter: 2018Q3

REPORT INFORMATION
  Report Type: Spontaneous
  Country: US (occurrence: US)
  Receive Date: 20180703
  Receipt Date: 20180703
  Transmission Date: 20181010
  Serious: Yes (Death)
  Sender: FDA-Public Use
  Company Number: None

PATIENT
  Sex: Female
  Weight: 81.2 kg

DRUGS (8)
  1. ASPIRIN. [Suspect]
     Active Substance: ASPIRIN
     Dates: end: 20180424
  2. SENOKOT [Concomitant]
     Active Substance: SENNOSIDES
  3. DUONEB [Concomitant]
     Active Substance: ALBUTEROL SULFATE\IPRATROPIUM BROMIDE
  4. KLONOPIN [Concomitant]
     Active Substance: CLONAZEPAM
  5. LISINOPRIL. [Concomitant]
     Active Substance: LISINOPRIL
  6. PULMICORT TURBUHALER [Concomitant]
     Active Substance: BUDESONIDE
  7. NAMENDA [Concomitant]
     Active Substance: MEMANTINE HYDROCHLORIDE
  8. ADVAIR DISKUS [Concomitant]
     Active Substance: FLUTICASONE PROPIONATE\SALMETEROL XINAFOATE

REACTIONS (6)
  - Pleural effusion [None]
  - Dyspnoea [None]
  - Breast cancer metastatic [None]
  - Parainfluenzae virus infection [None]
  - Metastases to central nervous system [None]
  - Pneumonia streptococcal [None]
